FAERS Safety Report 8019357-8 (Version None)
Quarter: 2012Q1

REPORT INFORMATION
  Report Type: 
  Country: None (occurrence: None)
  Receive Date: 20120103
  Receipt Date: 20111223
  Transmission Date: 20120608
  Serious: Yes (Hospitalization)
  Sender: FDA-Public Use
  Company Number: US-BRISTOL-MYERS SQUIBB COMPANY-16317166

PATIENT
  Age: 46 Year
  Sex: Male
  Weight: 106 kg

DRUGS (4)
  1. VEMURAFENIB [Suspect]
     Dates: start: 20111206, end: 20111213
  2. CYCLOPHOSPHAMIDE [Suspect]
     Indication: METASTATIC MALIGNANT MELANOMA
     Dates: start: 20111031
  3. PROLEUKIN [Suspect]
     Indication: METASTATIC MALIGNANT MELANOMA
     Route: 058
     Dates: start: 20111102, end: 20111116
  4. IPILIMUMAB [Suspect]
     Indication: METASTATIC MALIGNANT MELANOMA
     Dosage: ALSO ON 11MAR2011 AND 22NOV2011.
     Route: 042
     Dates: start: 20111004

REACTIONS (10)
  - NEOPLASM MALIGNANT [None]
  - RASH MACULO-PAPULAR [None]
  - PYREXIA [None]
  - DIZZINESS [None]
  - RENAL IMPAIRMENT [None]
  - CHROMATURIA [None]
  - METASTATIC MALIGNANT MELANOMA [None]
  - LIVER FUNCTION TEST ABNORMAL [None]
  - ALANINE AMINOTRANSFERASE INCREASED [None]
  - ASPARTATE AMINOTRANSFERASE INCREASED [None]
